FAERS Safety Report 8573039-2 (Version None)
Quarter: 2012Q3

REPORT INFORMATION
  Report Type: 
  Country: None (occurrence: None)
  Receive Date: 20120806
  Receipt Date: 20120727
  Transmission Date: 20120928
  Serious: Yes (Other)
  Sender: FDA-Public Use
  Company Number: US-CELGENEUS-163-20785-12073117

PATIENT
  Sex: Male

DRUGS (4)
  1. THALOMID [Suspect]
     Dosage: 150MG-100MG
     Route: 048
     Dates: start: 20101201
  2. THALOMID [Suspect]
     Dosage: 50 MILLIGRAM
     Route: 048
     Dates: start: 20120601, end: 20120712
  3. THALOMID [Suspect]
     Indication: GASTROINTESTINAL NEOPLASM
     Dosage: 100 MILLIGRAM
     Route: 048
     Dates: start: 20100301
  4. OCTREOTIDE ACETATE [Concomitant]
     Route: 065

REACTIONS (1)
  - MICROANGIOPATHY [None]
